FAERS Safety Report 24826018 (Version 1)
Quarter: 2025Q1

REPORT INFORMATION
  Report Type: Spontaneous
  Country: US (occurrence: US)
  Receive Date: 20250109
  Receipt Date: 20250109
  Transmission Date: 20250409
  Serious: Yes (Life-Threatening, Other)
  Sender: DR REDDYS
  Company Number: US-DRL-USA-USA/2025/01/000172

PATIENT
  Sex: Male

DRUGS (1)
  1. MINOCYCLINE [Suspect]
     Active Substance: MINOCYCLINE HYDROCHLORIDE
     Indication: Acne

REACTIONS (2)
  - Lupus-like syndrome [Recovered/Resolved]
  - Liver function test increased [Recovered/Resolved]
